FAERS Safety Report 16261952 (Version 1)
Quarter: 2019Q2

REPORT INFORMATION
  Report Type: Spontaneous
  Country: AT (occurrence: AT)
  Receive Date: 20190501
  Receipt Date: 20190501
  Transmission Date: 20190711
  Serious: Yes (Hospitalization)
  Sender: FDA-Public Use
  Company Number: AT-B.I. PHARMACEUTICALS,INC./RIDGEFIELD-2019-BI-019840

PATIENT
  Sex: Female

DRUGS (1)
  1. SYNJARDY [Suspect]
     Active Substance: EMPAGLIFLOZIN\METFORMIN HYDROCHLORIDE
     Indication: PRODUCT USED FOR UNKNOWN INDICATION
     Dosage: STRENGTH, UNIT DOSE AND DAILY DOSE: 5/1000 MILLIGRAM
     Route: 065

REACTIONS (3)
  - Urinary tract infection [Unknown]
  - Inflammatory marker increased [Unknown]
  - Abscess [Unknown]
